FAERS Safety Report 16362264 (Version 1)
Quarter: 2019Q2

REPORT INFORMATION
  Report Type: Report from Study
  Country: FR (occurrence: FR)
  Receive Date: 20190528
  Receipt Date: 20190528
  Transmission Date: 20190711
  Serious: Yes (Death)
  Sender: FDA-Public Use
  Company Number: FR-MYLANLABS-2019M1049696

PATIENT
  Sex: Male

DRUGS (2)
  1. ZYTIGA [Suspect]
     Active Substance: ABIRATERONE ACETATE
     Indication: PROSTATE CANCER METASTATIC
     Dosage: FOUR TABLETS OF 250MG EACH; IN A 28 DAY TREATMENT CYCLE; WAS ADMINISTERED AT LEAST 1H BEFORE OR 2...
     Route: 048
  2. PREDNISONE. [Suspect]
     Active Substance: PREDNISONE
     Indication: PROSTATE CANCER METASTATIC
     Dosage: LOW-DOSE; IN A 28 DAY TREATMENT CYCLE; WAS ADMINISTERED AT LEAST 1H BEFORE OR 2H AFTER A MEAL.
     Route: 048

REACTIONS (1)
  - Cerebrovascular accident [Fatal]
